FAERS Safety Report 9845244 (Version 3)
Quarter: 2014Q2

REPORT INFORMATION
  Report Type: Spontaneous
  Country: US (occurrence: US)
  Receive Date: 20140127
  Receipt Date: 20140421
  Transmission Date: 20141212
  Serious: Yes (Other)
  Sender: FDA-Public Use
  Company Number: US-MALLINCKRODT-T201400338

PATIENT
  Sex: Male

DRUGS (5)
  1. GABLOFEN [Suspect]
     Indication: MUSCLE SPASTICITY
     Dosage: 244 MCG/DAY
     Route: 037
  2. GABLOFEN [Suspect]
     Dosage: 380.1 MCG/DAY
     Route: 037
  3. GABLOFEN [Suspect]
     Dosage: 586 MCG/DAY
     Route: 037
  4. GABLOFEN [Suspect]
     Dosage: 880 MCG/DAY
     Route: 037
     Dates: start: 201305
  5. GABLOFEN [Suspect]
     Dosage: UNK
     Route: 037
     Dates: start: 20140318

REACTIONS (4)
  - Drug withdrawal syndrome [Recovering/Resolving]
  - Lack of spontaneous speech [Recovering/Resolving]
  - Device failure [Recovered/Resolved]
  - Gastrooesophageal reflux disease [Unknown]
